FAERS Safety Report 4439221-0 (Version None)
Quarter: 2004Q3

REPORT INFORMATION
  Report Type: 
  Country: None (occurrence: None)
  Receive Date: 20040728
  Receipt Date: 20040322
  Transmission Date: 20050211
  Serious: No
  Sender: FDA-Public Use
  Company Number: USA040362006

PATIENT
  Sex: Male
  Weight: 25 kg

DRUGS (1)
  1. STRATTERA [Suspect]
     Indication: PSYCHOMOTOR HYPERACTIVITY
     Dosage: 50 MG/L IN THE MORNING
     Dates: start: 20030101

REACTIONS (12)
  - ABDOMINAL PAIN [None]
  - CHEST DISCOMFORT [None]
  - CONSTIPATION [None]
  - EOSINOPHIL COUNT INCREASED [None]
  - PALLOR [None]
  - PERIPHERAL COLDNESS [None]
  - PRURITUS [None]
  - RASH [None]
  - SKIN DISCOLOURATION [None]
  - STOMACH DISCOMFORT [None]
  - VIRAL INFECTION [None]
  - VOMITING [None]
